FAERS Safety Report 6830071-4 (Version None)
Quarter: 2010Q3

REPORT INFORMATION
  Report Type: 
  Country: None (occurrence: None)
  Receive Date: 20100711
  Receipt Date: 20100513
  Transmission Date: 20110219
  Serious: No
  Sender: FDA-Public Use
  Company Number: US-ALLERGAN-1006311US

PATIENT
  Age: 38 Year
  Sex: Female

DRUGS (2)
  1. LATISSE [Suspect]
     Indication: PRODUCT USED FOR UNKNOWN INDICATION
     Dosage: 1 GTT, UNK
  2. FACIAL MOISTURIZER [Suspect]
     Dosage: UNK

REACTIONS (2)
  - EYE PRURITUS [None]
  - INCORRECT DOSE ADMINISTERED [None]
